FAERS Safety Report 6733515-1 (Version None)
Quarter: 2010Q2

REPORT INFORMATION
  Report Type: 
  Country: None (occurrence: None)
  Receive Date: 20100520
  Receipt Date: 20100419
  Transmission Date: 20101027
  Serious: No
  Sender: FDA-Public Use
  Company Number: US-BAYER-201014476BCC

PATIENT
  Age: 73 Year
  Sex: Female
  Weight: 75 kg

DRUGS (19)
  1. ALEVE (CAPLET) [Suspect]
     Indication: OSTEOARTHRITIS
     Dosage: TOTAL DAILY DOSE: 440 MG  UNIT DOSE: 220 MG
     Route: 048
     Dates: start: 20100417, end: 20100417
  2. ALEVE (CAPLET) [Suspect]
     Dosage: TOTAL DAILY DOSE: 220 MG  UNIT DOSE: 220 MG
     Route: 048
     Dates: start: 20100418, end: 20100418
  3. LEVOTHYROXINE SODIUM [Concomitant]
  4. HYDROCHLOROTHIAZIDE [Concomitant]
  5. ATENOLOL [Concomitant]
  6. LOVAZA [Concomitant]
  7. VITAMIN B6 [Concomitant]
  8. VITAMIN B-12 [Concomitant]
  9. VITAMIN D3 [Concomitant]
  10. MAGNESIUM [Concomitant]
  11. POTASSIUM [Concomitant]
  12. ASPARTAME [Concomitant]
  13. GINGER [Concomitant]
  14. CENTRUM SILVER [Concomitant]
  15. NATURAL C [Concomitant]
  16. ACIDOPHILUS [Concomitant]
  17. TRILIPIX [Concomitant]
  18. PAPAYA ENZYME [Concomitant]
  19. GRAPE SEED [Concomitant]

REACTIONS (1)
  - DIZZINESS [None]
